FAERS Safety Report 15359847 (Version 1)
Quarter: 2018Q4

REPORT INFORMATION
  Report Type: Spontaneous
  Country: CA (occurrence: CA)
  Receive Date: 20180907
  Receipt Date: 20180907
  Transmission Date: 20190204
  Serious: Yes (Hospitalization, Disabling)
  Sender: FDA-Public Use
  Company Number: CA-VIVIMED-2017SP015463

PATIENT

DRUGS (3)
  1. AMLODIPINE [Suspect]
     Active Substance: AMLODIPINE BESYLATE
     Indication: PRODUCT USED FOR UNKNOWN INDICATION
     Dosage: 150 MG
     Route: 065
  2. ESCITALOPRAM [Suspect]
     Active Substance: ESCITALOPRAM OXALATE
     Indication: PRODUCT USED FOR UNKNOWN INDICATION
     Dosage: 60 MG
     Route: 065
  3. RISPERIDONE. [Suspect]
     Active Substance: RISPERIDONE
     Indication: PRODUCT USED FOR UNKNOWN INDICATION
     Dosage: 6 MG
     Route: 065

REACTIONS (18)
  - Visual impairment [Not Recovered/Not Resolved]
  - Hypotension [Recovered/Resolved]
  - Colour blindness [Not Recovered/Not Resolved]
  - Anuria [Recovered/Resolved]
  - Cytotoxic oedema [Unknown]
  - Infarction [Unknown]
  - Hypokalaemia [Recovered/Resolved]
  - Hypoglycaemia [Recovered/Resolved]
  - Blindness [Not Recovered/Not Resolved]
  - Tachycardia [Recovered/Resolved]
  - Shock [Recovered/Resolved]
  - Altered state of consciousness [Recovered/Resolved]
  - Intentional overdose [Unknown]
  - Mydriasis [Unknown]
  - Hyperdynamic left ventricle [Recovered/Resolved]
  - Vasodilatation [Recovered/Resolved]
  - Optic nerve injury [Not Recovered/Not Resolved]
  - Optic atrophy [Not Recovered/Not Resolved]
